FAERS Safety Report 23139437 (Version 1)
Quarter: 2023Q4

REPORT INFORMATION
  Report Type: Spontaneous
  Country: GB (occurrence: GB)
  Receive Date: 20231102
  Receipt Date: 20231102
  Transmission Date: 20240110
  Serious: Yes (Hospitalization)
  Sender: FDA-Public Use
  Company Number: GB-MHRA-ADR 27648115

PATIENT
  Age: 69 Year
  Weight: 77.1 kg

DRUGS (8)
  1. LENALIDOMIDE [Suspect]
     Active Substance: LENALIDOMIDE
     Indication: Product used for unknown indication
     Dosage: 900 MILLIGRAM
     Route: 048
     Dates: start: 20220811
  2. LENALIDOMIDE [Suspect]
     Active Substance: LENALIDOMIDE
     Indication: Extranodal marginal zone B-cell lymphoma (MALT type)
     Dosage: 20 MILLIGRAM, DAILY DAYS 1 TO 21 OF EACH 28-DAY CYCLE FOR CYCLES 1 TO 12
     Route: 048
     Dates: start: 20220607, end: 20220727
  3. RITUXIMAB [Suspect]
     Active Substance: RITUXIMAB
     Indication: Product used for unknown indication
     Dosage: 375 MG/M2 (700 MG) (WEEKLY FOR CYCLE 1 THEN DAY 1 OF CYCLES 2 TO 5
     Route: 042
     Dates: start: 20220714
  4. RITUXIMAB [Suspect]
     Active Substance: RITUXIMAB
     Indication: Extranodal marginal zone B-cell lymphoma (MALT type)
     Dosage: 375 MG/M2 (700 MG) (WEEKLY FOR CYCLE 1 THEN DAY 1 OF CYCLES 2 TO 5
     Route: 042
     Dates: start: 20220708
  5. TAFASITAMAB [Suspect]
     Active Substance: TAFASITAMAB
     Indication: Product used for unknown indication
     Dosage: 12 MG/KG (924 MG) (WEEKLY FOR CYCLES 1 TO 3, THEN ON DAYS 1 AND 15 FOR CYCLES 4 TO 12
     Route: 042
     Dates: start: 20220804
  6. TAFASITAMAB [Suspect]
     Active Substance: TAFASITAMAB
     Indication: Extranodal marginal zone B-cell lymphoma (MALT type)
     Dosage: 12 MG/KG (924 MG) (WEEKLY FOR CYCLES 1 TO 3, THEN ON DAYS 1 AND 15 FOR CYCLES 4 TO 12
     Route: 042
     Dates: start: 20220607, end: 20220727
  7. CARBOCYSTEINE [Concomitant]
     Active Substance: CARBOCYSTEINE
     Indication: Product used for unknown indication
  8. TIOTROPIUM BROMIDE [Concomitant]
     Active Substance: TIOTROPIUM BROMIDE
     Indication: Product used for unknown indication

REACTIONS (5)
  - Anaemia [Recovered/Resolved]
  - Off label use [Unknown]
  - Influenza [Recovered/Resolved]
  - Off label use [Unknown]
  - Intentional product use issue [Unknown]

NARRATIVE: CASE EVENT DATE: 20220721
